FAERS Safety Report 8988342 (Version 2)
Quarter: 2013Q4

REPORT INFORMATION
  Report Type: Spontaneous
  Country: US (occurrence: None)
  Receive Date: 20121218
  Receipt Date: 20131002
  Transmission Date: 20140711
  Serious: Yes (Hospitalization, Other)
  Sender: FDA-Public Use
  Company Number: 2012P1066548

PATIENT
  Age: 63 Year
  Sex: Male

DRUGS (2)
  1. INFUMORPH [Suspect]
  2. BUPIVACAINE (NO PREF. NAME) [Suspect]

REACTIONS (10)
  - Infection [None]
  - Wound dehiscence [None]
  - Wound drainage [None]
  - Headache [None]
  - Hypotension [None]
  - Haemorrhage [None]
  - Nausea [None]
  - Vomiting [None]
  - Culture wound positive [None]
  - Staphylococcal infection [None]
